FAERS Safety Report 8004425-7 (Version None)
Quarter: 2011Q4

REPORT INFORMATION
  Report Type: 
  Country: None (occurrence: None)
  Receive Date: 20111221
  Receipt Date: 20111221
  Transmission Date: 20120403
  Serious: No
  Sender: FDA-Public Use
  Company Number: None

PATIENT
  Sex: Female
  Weight: 58.0604 kg

DRUGS (1)
  1. ALTABAX [Suspect]
     Indication: EXCORIATION
     Dosage: ONCE
     Dates: start: 20111008

REACTIONS (2)
  - BURNING SENSATION [None]
  - PAIN [None]
